FAERS Safety Report 13320568 (Version 2)
Quarter: 2017Q1

REPORT INFORMATION
  Report Type: Spontaneous
  Country: US (occurrence: US)
  Receive Date: 20170309
  Receipt Date: 20170317
  Transmission Date: 20170428
  Serious: No
  Sender: FDA-Public Use
  Company Number: US-HORIZON-ACT-0047-2017

PATIENT
  Age: 9 Year
  Sex: Male

DRUGS (3)
  1. ACTIMMUNE [Suspect]
     Active Substance: INTERFERON GAMMA-1B
     Indication: CHRONIC GRANULOMATOUS DISEASE
     Dosage: 25 ?G THREE TIMES WEEKLY
     Dates: start: 20100816
  2. SPORANOX [Concomitant]
     Active Substance: ITRACONAZOLE
  3. BACTRIM [Concomitant]
     Active Substance: SULFAMETHOXAZOLE\TRIMETHOPRIM

REACTIONS (6)
  - Diarrhoea [Unknown]
  - Feeling abnormal [Unknown]
  - Anal pruritus [Unknown]
  - Abdominal distension [Unknown]
  - Fructose intolerance [Unknown]
  - Abdominal pain upper [Unknown]
